FAERS Safety Report 8062237-2 (Version None)
Quarter: 2012Q1

REPORT INFORMATION
  Report Type: 
  Country: None (occurrence: None)
  Receive Date: 20120123
  Receipt Date: 20120109
  Transmission Date: 20120608
  Serious: Yes (Other)
  Sender: FDA-Public Use
  Company Number: US-PAR PHARMACEUTICAL, INC-2010SCPR002340

PATIENT

DRUGS (2)
  1. DISULFIRAM [Suspect]
     Indication: PRODUCT USED FOR UNKNOWN INDICATION
     Dosage: 6250 MG, UNKNOWN
     Route: 048
  2. ETHANOL [Interacting]
     Indication: PRODUCT USED FOR UNKNOWN INDICATION
     Dosage: UNK
     Route: 048

REACTIONS (6)
  - FLUSHING [None]
  - DRUG INTERACTION [None]
  - TACHYCARDIA [None]
  - INTENTIONAL OVERDOSE [None]
  - ALCOHOL INTERACTION [None]
  - HYPOTENSION [None]
